FAERS Safety Report 20762777 (Version 1)
Quarter: 2022Q2

REPORT INFORMATION
  Report Type: Spontaneous
  Country: US (occurrence: None)
  Receive Date: 20220427
  Receipt Date: 20220427
  Transmission Date: 20220721
  Serious: No
  Sender: FDA-Public Use
  Company Number: None

PATIENT
  Age: 17 Year
  Sex: Female
  Weight: 59.87 kg

DRUGS (1)
  1. NEXPLANON [Suspect]
     Active Substance: ETONOGESTREL

REACTIONS (5)
  - Headache [None]
  - Abnormal uterine bleeding [None]
  - Acne [None]
  - Weight decreased [None]
  - Vaginal infection [None]

NARRATIVE: CASE EVENT DATE: 20180312
